FAERS Safety Report 12726119 (Version 1)
Quarter: 2016Q3

REPORT INFORMATION
  Report Type: Spontaneous
  Country: CA (occurrence: CA)
  Receive Date: 20160908
  Receipt Date: 20160908
  Transmission Date: 20161109
  Serious: Yes (Other)
  Sender: FDA-Public Use
  Company Number: CA-JNJFOC-20160826382

PATIENT

DRUGS (2)
  1. STELARA [Suspect]
     Active Substance: USTEKINUMAB
     Indication: CROHN^S DISEASE
     Route: 058
  2. STELARA [Suspect]
     Active Substance: USTEKINUMAB
     Indication: CROHN^S DISEASE
     Route: 042

REACTIONS (10)
  - Clostridium difficile infection [Unknown]
  - Rash [Unknown]
  - Infection [Unknown]
  - Alopecia [Unknown]
  - Skin infection [Unknown]
  - Soft tissue infection [Unknown]
  - Arthralgia [Unknown]
  - Headache [Unknown]
  - Injection related reaction [Unknown]
  - Respiratory tract infection [Unknown]
